FAERS Safety Report 6834016-2 (Version None)
Quarter: 2010Q3

REPORT INFORMATION
  Report Type: 
  Country: None (occurrence: None)
  Receive Date: 20100712
  Receipt Date: 20100706
  Transmission Date: 20110219
  Serious: Yes (Other)
  Sender: FDA-Public Use
  Company Number: US-AMGEN-QUU422591

PATIENT
  Sex: Male
  Weight: 70.4 kg

DRUGS (2)
  1. NPLATE [Suspect]
     Indication: IDIOPATHIC THROMBOCYTOPENIC PURPURA
     Dates: start: 20100503, end: 20100531
  2. VIDAZA [Concomitant]

REACTIONS (1)
  - ARTERIAL THROMBOSIS LIMB [None]
